FAERS Safety Report 8979038 (Version 1)
Quarter: 2012Q4

REPORT INFORMATION
  Report Type: 
  Country: GB (occurrence: GB)
  Receive Date: 20121221
  Receipt Date: 20121221
  Transmission Date: 20130627
  Serious: Yes (Other)
  Sender: FDA-Public Use
  Company Number: GB-PFIZER INC-2012324626

PATIENT
  Age: 35 Year
  Sex: Male
  Weight: 94 kg

DRUGS (3)
  1. CHAMPIX [Suspect]
     Indication: SMOKING CESSATION THERAPY
     Dosage: 1 mg, UNK
     Route: 048
     Dates: start: 20121015
  2. NOVORAPID [Concomitant]
     Indication: DIABETES
  3. LANTUS [Concomitant]
     Indication: DIABETES

REACTIONS (2)
  - Gingival bleeding [Not Recovered/Not Resolved]
  - Blood disorder [Not Recovered/Not Resolved]
